FAERS Safety Report 24539470 (Version 1)
Quarter: 2024Q4

REPORT INFORMATION
  Report Type: Spontaneous
  Country: US (occurrence: None)
  Receive Date: 20241022
  Receipt Date: 20241022
  Transmission Date: 20250115
  Serious: Yes (Death)
  Sender: Public
  Company Number: None

PATIENT
  Age: 66 Year
  Sex: Male
  Weight: 124 kg

DRUGS (11)
  1. MYCOPHENOLIC ACID [Suspect]
     Active Substance: MYCOPHENOLIC ACID
     Indication: Renal transplant
     Dosage: FREQUENCY : TWICE A DAY;?
     Route: 048
     Dates: start: 20240822, end: 20241008
  2. AMIODARONE [Concomitant]
     Active Substance: AMIODARONE
  3. BUMETANIDE [Concomitant]
     Active Substance: BUMETANIDE
  4. METOPROLOL ER SUCCINATE 200MG [Concomitant]
  5. SIMVASTATIN [Concomitant]
     Active Substance: SIMVASTATIN
  6. ACYCLOVIR [Concomitant]
     Active Substance: ACYCLOVIR
  7. FAMOTIDINE [Concomitant]
     Active Substance: FAMOTIDINE
  8. MAG-OX 400MG [Concomitant]
  9. MULTIVITAMIN ADULTS TABLETS [Concomitant]
  10. MYCOPHENOLIC ACID [Concomitant]
     Active Substance: MYCOPHENOLIC ACID
  11. PHOSPHA 250 NEUTRAL [Concomitant]
     Active Substance: POTASSIUM PHOSPHATE, MONOBASIC\SODIUM PHOSPHATE, DIBASIC, ANHYDROUS\SODIUM PHOSPHATE, MONOBASIC, MON

REACTIONS (1)
  - Death [None]

NARRATIVE: CASE EVENT DATE: 20241008
